FAERS Safety Report 8862657 (Version 3)
Quarter: 2012Q4

REPORT INFORMATION
  Report Type: 
  Country: DE (occurrence: CA)
  Receive Date: 20121026
  Receipt Date: 20121231
  Transmission Date: 20130627
  Serious: Yes (Hospitalization)
  Sender: FDA-Public Use
  Company Number: CA-FRI-1000039806

PATIENT
  Age: 58 None
  Sex: Female

DRUGS (1)
  1. ROFLUMILAST [Suspect]
     Dosage: 500 mcg
     Route: 048
     Dates: start: 20120705

REACTIONS (9)
  - Basedow^s disease [Unknown]
  - Sleep apnoea syndrome [Unknown]
  - Unevaluable event [Unknown]
  - Thrombosis [Unknown]
  - Knee arthroplasty [Unknown]
  - Cough [Unknown]
  - Increased upper airway secretion [Unknown]
  - Unevaluable event [Unknown]
  - Malaise [Unknown]
